FAERS Safety Report 7373030-8 (Version None)
Quarter: 2011Q1

REPORT INFORMATION
  Report Type: 
  Country: None (occurrence: None)
  Receive Date: 20110324
  Receipt Date: 20110316
  Transmission Date: 20110831
  Serious: Yes (Life-Threatening, Hospitalization, Other)
  Sender: FDA-Public Use
  Company Number: BE-CELGENEUS-013-50794-11032149

PATIENT
  Sex: Male
  Weight: 100 kg

DRUGS (3)
  1. VIDAZA [Suspect]
     Route: 065
  2. PANTOMED [Concomitant]
     Dosage: 80 MILLIGRAM
     Route: 065
     Dates: start: 20110113
  3. NEUPOGEN [Concomitant]
     Indication: NEUTROPENIA
     Dosage: 480 MICROG/ML
     Route: 058
     Dates: start: 20110120, end: 20110123

REACTIONS (4)
  - PNEUMONIA [None]
  - PANCYTOPENIA [None]
  - SEPTIC SHOCK [None]
  - MELAENA [None]
